FAERS Safety Report 25229563 (Version 1)
Quarter: 2025Q2

REPORT INFORMATION
  Report Type: Spontaneous
  Country: DE (occurrence: DE)
  Receive Date: 20250423
  Receipt Date: 20250423
  Transmission Date: 20250716
  Serious: Yes (Hospitalization)
  Sender: BAXTER
  Company Number: None

PATIENT
  Age: 56 Year
  Sex: Female
  Weight: 79 kg

DRUGS (1)
  1. PROPOFOL [Suspect]
     Active Substance: PROPOFOL
     Indication: Induction and maintenance of anaesthesia
     Route: 042
     Dates: start: 20250331

REACTIONS (4)
  - Paraesthesia [Not Recovered/Not Resolved]
  - Spinal pain [Not Recovered/Not Resolved]
  - Pain in extremity [Not Recovered/Not Resolved]
  - Back pain [Not Recovered/Not Resolved]

NARRATIVE: CASE EVENT DATE: 20250401
